FAERS Safety Report 6692506-X (Version None)
Quarter: 2010Q2

REPORT INFORMATION
  Report Type: 
  Country: None (occurrence: None)
  Receive Date: 20100419
  Receipt Date: 20070205
  Transmission Date: 20101027
  Serious: Yes (Life-Threatening, Hospitalization)
  Sender: FDA-Public Use
  Company Number: US210340

PATIENT
  Age: 16 Year
  Sex: Male
  Weight: 91 kg

DRUGS (4)
  1. ENBREL [Suspect]
  2. PREDNSOLONE (PREDNISOLONE) [Concomitant]
  3. METHOTREXATE [Concomitant]
  4. NAPROXEN [Concomitant]

REACTIONS (1)
  - YOLK SAC TUMOUR SITE UNSPECIFIED [None]
